FAERS Safety Report 7413197-6 (Version None)
Quarter: 2011Q2

REPORT INFORMATION
  Report Type: 
  Country: None (occurrence: None)
  Receive Date: 20110408
  Receipt Date: 20110408
  Transmission Date: 20111010
  Serious: Yes (Hospitalization)
  Sender: FDA-Public Use
  Company Number: None

PATIENT
  Age: 65 Year
  Sex: Male
  Weight: 112 kg

DRUGS (2)
  1. LISINOPRIL [Suspect]
     Dosage: 20MG BID PO
     Route: 048
     Dates: start: 20100923, end: 20100927
  2. CEFAZOLIN [Suspect]
     Dosage: 2 GM EVERY DAY IV
     Route: 042
     Dates: start: 20100927, end: 20100927

REACTIONS (1)
  - ANGIOEDEMA [None]
